FAERS Safety Report 5878837-1 (Version None)
Quarter: 2008Q3

REPORT INFORMATION
  Report Type: 
  Country: None (occurrence: None)
  Receive Date: 20080910
  Receipt Date: 20080827
  Transmission Date: 20090109
  Serious: Yes (Death, Other)
  Sender: FDA-Public Use
  Company Number: MPS1-1000032

PATIENT
  Age: 11 Year
  Sex: Female
  Weight: 20 kg

DRUGS (1)
  1. ALDURAZYME [Suspect]
     Indication: MUCOPOLYSACCHARIDOSIS I
     Dosage: 14.5 MG, 1X/W; INTRAVENOUS
     Route: 042
     Dates: start: 20031014, end: 20080305

REACTIONS (2)
  - DISEASE PROGRESSION [None]
  - MULTI-ORGAN FAILURE [None]
